FAERS Safety Report 11009165 (Version 7)
Quarter: 2016Q2

REPORT INFORMATION
  Report Type: Spontaneous
  Country: US (occurrence: US)
  Receive Date: 20150410
  Receipt Date: 20160519
  Transmission Date: 20160815
  Serious: Yes (Hospitalization)
  Sender: FDA-Public Use
  Company Number: US-PFIZER INC-2015117859

PATIENT
  Age: 69 Year
  Sex: Female
  Weight: 85 kg

DRUGS (8)
  1. SUTENT [Suspect]
     Active Substance: SUNITINIB MALATE
     Dosage: 25 MG, DAILY, 4 WEEKS ON AND 2 WEEKS OFF
     Route: 048
     Dates: start: 20140616, end: 201409
  2. DILTIAZEM [Concomitant]
     Active Substance: DILTIAZEM
     Indication: HYPERTENSION
     Dosage: 300 MG, 1X/DAY
     Route: 048
  3. SUTENT [Suspect]
     Active Substance: SUNITINIB MALATE
     Dosage: 12.5 MG, DAILY, 4 WEEKS ON AND 2 WEEKS OFF
     Route: 048
     Dates: start: 20141003, end: 20150730
  4. XGEVA [Concomitant]
     Active Substance: DENOSUMAB
     Dosage: UNK
  5. SUTENT [Suspect]
     Active Substance: SUNITINIB MALATE
     Indication: RENAL CELL CARCINOMA STAGE IV
     Dosage: 50 MG, DAILY, 4 WEEKS ON AND 2 WEEKS OFF
     Route: 048
     Dates: start: 20140110, end: 20140211
  6. SUTENT [Suspect]
     Active Substance: SUNITINIB MALATE
     Dosage: 12.5 MG, DAILY, 4 WEEKS ON AND 2 WEEKS OFF
     Route: 048
     Dates: start: 20140307, end: 20140615
  7. CITALOPRAM [Concomitant]
     Active Substance: CITALOPRAM HYDROBROMIDE
     Indication: ANXIETY
     Dosage: 20 MG, 1X/DAY
     Route: 048
  8. SIMVASTATIN. [Concomitant]
     Active Substance: SIMVASTATIN
     Indication: HYPERCHOLESTEROLAEMIA
     Dosage: 10 MG, 1X/DAY
     Route: 048

REACTIONS (11)
  - Disease progression [Unknown]
  - Diarrhoea [Recovered/Resolved]
  - Nausea [Unknown]
  - Headache [Recovered/Resolved]
  - Syncope [Unknown]
  - Mucosal inflammation [Recovered/Resolved]
  - Candida infection [Recovered/Resolved]
  - Dehydration [Recovered/Resolved]
  - Electrolyte depletion [Unknown]
  - Vomiting [Unknown]
  - Renal cell carcinoma stage IV [Unknown]

NARRATIVE: CASE EVENT DATE: 2014
